FAERS Safety Report 11118623 (Version 1)
Quarter: 2015Q2

REPORT INFORMATION
  Report Type: Spontaneous
  Country: US (occurrence: None)
  Receive Date: 20150515
  Receipt Date: 20150515
  Transmission Date: 20150821
  Serious: Yes (Disabling, Other)
  Sender: FDA-Public Use
  Company Number: None

PATIENT
  Age: 65 Year
  Sex: Male
  Weight: 95.26 kg

DRUGS (2)
  1. FINASTERIDE. [Suspect]
     Active Substance: FINASTERIDE
     Indication: PROSTATIC DISORDER
     Route: 048
  2. VITAMINS [Concomitant]
     Active Substance: VITAMINS

REACTIONS (10)
  - Depression [None]
  - Male orgasmic disorder [None]
  - Asthenia [None]
  - Loss of consciousness [None]
  - Loss of libido [None]
  - Dizziness [None]
  - Balance disorder [None]
  - Erectile dysfunction [None]
  - Fall [None]
  - Walking aid user [None]

NARRATIVE: CASE EVENT DATE: 20120501
